FAERS Safety Report 4635242-3 (Version None)
Quarter: 2005Q2

REPORT INFORMATION
  Report Type: 
  Country: None (occurrence: None)
  Receive Date: 20050411
  Receipt Date: 20050404
  Transmission Date: 20051028
  Serious: Yes (Other)
  Sender: FDA-Public Use
  Company Number: 200510665BCC

PATIENT
  Sex: Male
  Weight: 91.6266 kg

DRUGS (5)
  1. REGIMEN BAYER ASPIRIN 81 MG (ACETYLSALICYLIC ACID) [Suspect]
     Indication: MYOCARDIAL INFARCTION
     Dosage: 81 MG, IRR, ORAL
     Route: 048
  2. REGIMEN BAYER ASPIRIN 81 MG (ACETYLSALICYLIC ACID) [Suspect]
     Indication: PROPHYLAXIS
     Dosage: 81 MG, IRR, ORAL
     Route: 048
  3. PLENDIL [Concomitant]
  4. NADOLOL [Concomitant]
  5. PLAVIX [Concomitant]

REACTIONS (3)
  - GASTRIC HAEMORRHAGE [None]
  - GASTRIC ULCER [None]
  - OESOPHAGEAL ULCER [None]
